FAERS Safety Report 7234021-0 (Version None)
Quarter: 2010Q4

REPORT INFORMATION
  Report Type: 
  Country: None (occurrence: None)
  Receive Date: 20101130
  Receipt Date: 20060201
  Transmission Date: 20110411
  Serious: Yes (Hospitalization)
  Sender: FDA-Public Use
  Company Number: 2006-138037-NL

PATIENT
  Age: 41 Year
  Sex: Female
  Weight: 67.1 kg

DRUGS (5)
  1. NUVARING [Suspect]
     Indication: DYSMENORRHOEA
     Dosage: 1 DF;QM;VAG
     Route: 067
     Dates: start: 20050901, end: 20060130
  2. NUVARING [Suspect]
     Indication: MENSTRUATION IRREGULAR
     Dosage: 1 DF;QM;VAG
     Route: 067
     Dates: start: 20050901, end: 20060130
  3. SARAFEM [Concomitant]
  4. NEXIUM [Concomitant]
  5. ADVIL LIQUI-GELS [Concomitant]

REACTIONS (4)
  - ENDOMETRIAL HYPERTROPHY [None]
  - OFF LABEL USE [None]
  - OVARIAN CYST [None]
  - PULMONARY EMBOLISM [None]
